FAERS Safety Report 12254446 (Version 1)
Quarter: 2016Q2

REPORT INFORMATION
  Report Type: Spontaneous
  Country: RU (occurrence: RU)
  Receive Date: 20160411
  Receipt Date: 20160411
  Transmission Date: 20160815
  Serious: Yes (Other)
  Sender: FDA-Public Use
  Company Number: RU-B.I. PHARMACEUTICALS,INC./RIDGEFIELD-2016-BI-21105RZ

PATIENT
  Age: 68 Year
  Sex: Female

DRUGS (2)
  1. MOVALIS [Suspect]
     Active Substance: MELOXICAM
     Indication: PRODUCT USED FOR UNKNOWN INDICATION
     Route: 048
  2. TOLPERISONE [Suspect]
     Active Substance: TOLPERISONE
     Indication: PRODUCT USED FOR UNKNOWN INDICATION
     Route: 048

REACTIONS (3)
  - Swelling face [Recovered/Resolved]
  - Hyperaemia [Recovered/Resolved]
  - Laryngeal oedema [Recovered/Resolved]
